FAERS Safety Report 7534549-X (Version None)
Quarter: 2011Q2

REPORT INFORMATION
  Report Type: 
  Country: None (occurrence: None)
  Receive Date: 20110609
  Receipt Date: 20090626
  Transmission Date: 20111010
  Serious: Yes (Death, Life-Threatening)
  Sender: FDA-Public Use
  Company Number: PHHY2009JP15104

PATIENT
  Sex: Female

DRUGS (5)
  1. IDOMETHINE [Concomitant]
     Dosage: 70 MG, UNK
     Dates: start: 20071220, end: 20081024
  2. DICLOFENAC SODIUM [Concomitant]
     Dosage: 25 MG, UNK
     Route: 061
     Dates: start: 20080605, end: 20081024
  3. FEMARA [Concomitant]
     Dosage: 2.5 MG, UNK
     Route: 048
     Dates: start: 20071220, end: 20081024
  4. CGP 42446 [Suspect]
     Indication: BREAST CANCER
     Dosage: 4 MG, EVERY FOUR WEEKS
     Route: 042
     Dates: start: 20071220, end: 20081024
  5. KETOPROFEN [Concomitant]
     Dosage: 20 MG, UNK
     Dates: start: 20071220, end: 20081024

REACTIONS (4)
  - ASPHYXIA [None]
  - CARDIO-RESPIRATORY ARREST [None]
  - CHOKING [None]
  - LOSS OF CONSCIOUSNESS [None]
